FAERS Safety Report 4806639-3 (Version None)
Quarter: 2005Q4

REPORT INFORMATION
  Report Type: 
  Country: None (occurrence: None)
  Receive Date: 20051019
  Receipt Date: 20051005
  Transmission Date: 20060501
  Serious: Yes (Hospitalization, Other)
  Sender: FDA-Public Use
  Company Number: USA030331005

PATIENT
  Age: 42 Year
  Sex: Female
  Weight: 109 kg

DRUGS (6)
  1. HUMALOG [Suspect]
     Indication: DIABETES MELLITUS
     Dosage: 30 U/DAY
     Dates: start: 20010101
  2. PERCOCET [Concomitant]
  3. VALIUM [Concomitant]
  4. LISINOPRIL [Concomitant]
  5. LASIX [Concomitant]
  6. ALBUTEROL [Concomitant]

REACTIONS (13)
  - ANAESTHETIC COMPLICATION [None]
  - BLOOD GLUCOSE DECREASED [None]
  - BLOOD GLUCOSE INCREASED [None]
  - BLOOD IRON DECREASED [None]
  - BRACHIAL PLEXUS INJURY [None]
  - DYSGEUSIA [None]
  - HAEMORRHAGE [None]
  - HYPOAESTHESIA ORAL [None]
  - IATROGENIC INJURY [None]
  - NEURALGIC AMYOTROPHY [None]
  - PARAESTHESIA ORAL [None]
  - VISUAL ACUITY REDUCED [None]
  - WHEEZING [None]
